FAERS Safety Report 8490787-3 (Version None)
Quarter: 2012Q3

REPORT INFORMATION
  Report Type: 
  Country: None (occurrence: None)
  Receive Date: 20120706
  Receipt Date: 20120629
  Transmission Date: 20120928
  Serious: Yes (Hospitalization)
  Sender: FDA-Public Use
  Company Number: US-BIOGENIDEC-2012BI018750

PATIENT
  Age: 41 Year
  Sex: Female

DRUGS (1)
  1. AVONEX [Suspect]
     Indication: MULTIPLE SCLEROSIS
     Route: 030
     Dates: start: 20110925

REACTIONS (5)
  - FEELING HOT [None]
  - LOWER EXTREMITY MASS [None]
  - PAIN [None]
  - HYPOAESTHESIA [None]
  - BLADDER OPERATION [None]
